FAERS Safety Report 9392294 (Version 2)
Quarter: 2013Q3

REPORT INFORMATION
  Report Type: Spontaneous
  Country: BR (occurrence: BR)
  Receive Date: 20130710
  Receipt Date: 20130808
  Transmission Date: 20140515
  Serious: Yes (Hospitalization, Disabling)
  Sender: FDA-Public Use
  Company Number: BR-AMGEN-BRASP2013047813

PATIENT
  Age: 66 Year
  Sex: Female

DRUGS (3)
  1. ENBREL [Suspect]
     Indication: RHEUMATOID ARTHRITIS
     Dosage: 50 MG, ONCE WEEKLY
     Route: 065
  2. LOSARTAN [Concomitant]
     Indication: BLOOD PRESSURE INCREASED
     Dosage: UNK
  3. AMLODIPINE [Concomitant]
     Indication: BLOOD PRESSURE INCREASED
     Dosage: UNK

REACTIONS (2)
  - Upper limb fracture [Unknown]
  - Pain [Not Recovered/Not Resolved]
